FAERS Safety Report 19021320 (Version 1)
Quarter: 2021Q1

REPORT INFORMATION
  Report Type: Spontaneous
  Country: US (occurrence: US)
  Receive Date: 20210317
  Receipt Date: 20210317
  Transmission Date: 20210420
  Serious: No
  Sender: FDA-Public Use
  Company Number: US-MYLANLABS-2021M1014854

PATIENT
  Sex: Female
  Weight: 78.91 kg

DRUGS (6)
  1. ALLOPURINOL. [Suspect]
     Active Substance: ALLOPURINOL
     Indication: PRODUCT USED FOR UNKNOWN INDICATION
     Dosage: UNK
     Dates: start: 20200608
  2. BEMPEDOIC ACID. [Suspect]
     Active Substance: BEMPEDOIC ACID
     Indication: PRODUCT USED FOR UNKNOWN INDICATION
     Dosage: UNK
     Dates: start: 202006
  3. VASCEPA [Suspect]
     Active Substance: ICOSAPENT ETHYL
     Indication: BLOOD TRIGLYCERIDES ABNORMAL
     Dosage: 4 GRAM, QD
     Route: 048
     Dates: start: 20200325, end: 202004
  4. TYLENOL [Suspect]
     Active Substance: ACETAMINOPHEN
     Indication: PRODUCT USED FOR UNKNOWN INDICATION
     Dosage: UNK UNK, QW
  5. VASCEPA [Suspect]
     Active Substance: ICOSAPENT ETHYL
     Dosage: 2 GRAM, BID
     Route: 048
     Dates: start: 202004, end: 202009
  6. VASCEPA [Suspect]
     Active Substance: ICOSAPENT ETHYL
     Dosage: 2 GRAM, BID
     Route: 048
     Dates: start: 202009

REACTIONS (13)
  - Muscle spasms [Recovered/Resolved]
  - Blood test abnormal [Unknown]
  - Fall [Recovered/Resolved]
  - Oral mucosal eruption [Recovering/Resolving]
  - Nausea [Recovered/Resolved]
  - Inappropriate schedule of product administration [Recovered/Resolved]
  - Myalgia [Recovered/Resolved]
  - Prescribed underdose [Recovered/Resolved]
  - Muscle tightness [Recovered/Resolved]
  - Flatulence [Unknown]
  - Pain in extremity [Unknown]
  - Neoplasm skin [Recovered/Resolved]
  - Diarrhoea [Recovered/Resolved]
